FAERS Safety Report 8828107 (Version 3)
Quarter: 2013Q2

REPORT INFORMATION
  Report Type: Spontaneous
  Country: HU (occurrence: HU)
  Receive Date: 20121005
  Receipt Date: 20130422
  Transmission Date: 20140414
  Serious: Yes (Other)
  Sender: FDA-Public Use
  Company Number: HU-PFIZER INC-2012242540

PATIENT
  Age: 72 Year
  Sex: Female
  Weight: 68 kg

DRUGS (13)
  1. XALATAN [Suspect]
     Indication: GLAUCOMA
     Dosage: 1X1 DROP/EYE/DAY
     Dates: start: 2011
  2. MERCKFORMIN [Concomitant]
     Dosage: UNK
  3. AMARYL [Concomitant]
     Dosage: STARTED ABOUT 25 YEARS AGO
  4. FISH OIL [Concomitant]
     Dosage: UNK
  5. Q10 [Concomitant]
     Dosage: UNK
  6. FRONTIN [Concomitant]
     Dosage: STARTED LONG TIME AGO
  7. TOBREX [Concomitant]
     Dosage: UNK
  8. DIABION [Concomitant]
     Dosage: UNK
  9. MAGNE-B6 [Concomitant]
     Dosage: UNK
     Dates: start: 201203
  10. MILGAMMA [Concomitant]
     Dosage: UNK
     Dates: start: 201203
  11. TROMBEX [Concomitant]
     Dosage: UNK
  12. QUAMATEL [Concomitant]
     Dosage: UNK
  13. ERGOTOP [Concomitant]
     Dosage: UNK
     Dates: end: 201207

REACTIONS (4)
  - Visual impairment [Not Recovered/Not Resolved]
  - Bunion [Unknown]
  - Conjunctivitis [Not Recovered/Not Resolved]
  - Ocular hyperaemia [Not Recovered/Not Resolved]
